FAERS Safety Report 10085209 (Version 2)
Quarter: 2014Q2

REPORT INFORMATION
  Report Type: Spontaneous
  Country: DE (occurrence: DE)
  Receive Date: 20140417
  Receipt Date: 20140423
  Transmission Date: 20141212
  Serious: Yes (Hospitalization)
  Sender: FDA-Public Use
  Company Number: PHHY2014DE043031

PATIENT
  Age: 72 Year
  Sex: Female

DRUGS (2)
  1. HEPARIN [Suspect]
     Dosage: 29000 IU
  2. ENOXAPARIN SODIUM [Suspect]
     Indication: PROPHYLAXIS
     Dosage: 0.4 ML
     Route: 058

REACTIONS (14)
  - Cerebellar ischaemia [Unknown]
  - Disorientation [Recovered/Resolved]
  - Incoherent [Recovered/Resolved]
  - Tongue paralysis [Recovered/Resolved]
  - Neurologic neglect syndrome [Recovered/Resolved]
  - Quadriplegia [Recovered/Resolved]
  - Dysarthria [Recovered/Resolved]
  - Depressed level of consciousness [Recovered/Resolved]
  - Unresponsive to stimuli [Unknown]
  - Aortic valve stenosis [Recovered/Resolved]
  - Atrial fibrillation [Recovered/Resolved]
  - Heparin-induced thrombocytopenia [Recovered/Resolved]
  - Thrombosis [Recovered/Resolved]
  - Thrombosis in device [Recovered/Resolved]
